FAERS Safety Report 9999641 (Version 2)
Quarter: 2014Q1

REPORT INFORMATION
  Report Type: Report from Study
  Country: PL (occurrence: PL)
  Receive Date: 20140312
  Receipt Date: 20140312
  Transmission Date: 20141002
  Serious: Yes (Death, Hospitalization, Other)
  Sender: FDA-Public Use
  Company Number: PL-BRISTOL-MYERS SQUIBB COMPANY-16866188

PATIENT
  Age: 66 Year
  Sex: Female

DRUGS (8)
  1. BLINDED: IPILIMUMAB [Suspect]
     Indication: SMALL CELL LUNG CANCER
     Route: 042
     Dates: start: 20120810, end: 20120810
  2. ETOPOSIDE [Suspect]
     Indication: SMALL CELL LUNG CANCER
     Route: 042
     Dates: start: 20120808, end: 20120810
  3. CARBOPLATIN [Suspect]
     Indication: SMALL CELL LUNG CANCER
     Route: 042
     Dates: start: 20120808, end: 20120808
  4. CISPLATIN [Suspect]
     Indication: SMALL CELL LUNG CANCER
  5. BLINDED: PLACEBO [Suspect]
     Indication: SMALL CELL LUNG CANCER
     Route: 042
     Dates: start: 20120810, end: 20120810
  6. KALIPOZ [Concomitant]
     Dates: start: 2007
  7. DIURESIN [Concomitant]
     Dates: start: 2007
  8. NITRAZEPAM [Concomitant]
     Dates: start: 20120609, end: 201208

REACTIONS (3)
  - Sepsis [Fatal]
  - Pancytopenia [Fatal]
  - Deafness [Unknown]
